FAERS Safety Report 18118360 (Version 1)
Quarter: 2020Q3

REPORT INFORMATION
  Report Type: Spontaneous
  Country: US (occurrence: US)
  Receive Date: 20200806
  Receipt Date: 20200806
  Transmission Date: 20201103
  Serious: Yes (Other)
  Sender: FDA-Public Use
  Company Number: US-MYLANLABS-2020M1069710

PATIENT
  Age: 37 Year
  Sex: Female

DRUGS (2)
  1. METRONIDAZOLE. [Suspect]
     Active Substance: METRONIDAZOLE
     Indication: GIARDIASIS
     Route: 065
  2. NITAZOXANIDE [Suspect]
     Active Substance: NITAZOXANIDE
     Indication: GIARDIASIS
     Route: 065

REACTIONS (1)
  - Drug ineffective [Unknown]
